FAERS Safety Report 8062112-3 (Version None)
Quarter: 2012Q1

REPORT INFORMATION
  Report Type: 
  Country: None (occurrence: None)
  Receive Date: 20120123
  Receipt Date: 20120110
  Transmission Date: 20120608
  Serious: Yes (Other)
  Sender: FDA-Public Use
  Company Number: US-ELI_LILLY_AND_COMPANY-US201106002829

PATIENT
  Sex: Female

DRUGS (25)
  1. ACETAMINOPHEN [Concomitant]
  2. LUMIGAN [Concomitant]
  3. DIHYDROCODEINE BITARTRATE INJ [Concomitant]
  4. LYRICA [Concomitant]
     Dosage: 2 DF, QD
  5. FORTEO [Suspect]
     Dosage: 20 UG, QD
  6. FOLIC ACID [Concomitant]
     Dosage: 1 MG, QD
  7. OMEPRAZOLE [Concomitant]
     Dosage: 20 MG, QD
  8. OXYCODONE HCL [Concomitant]
     Dosage: 1 DF, EVERY 4 HRS
  9. AMLODIPINE [Concomitant]
  10. HYDROXYZINE HCL [Concomitant]
  11. IBUPROFEN [Concomitant]
  12. ATENOLOL [Concomitant]
     Dosage: 0.5 DF, QD
  13. VITAMIN D [Concomitant]
     Dosage: 3000 MG, QD
  14. FORTEO [Suspect]
     Dosage: 20 UG, QD
  15. LEXAPRO [Concomitant]
     Dosage: 20 MG, QD
  16. NAPROXEN [Concomitant]
     Dosage: 2 DF, BID
  17. TRAMADOL HCL [Concomitant]
     Dosage: 2 DF, BID
  18. THIAMINE HCL [Concomitant]
     Dosage: 100 MG, QD
  19. CALCIUM [Concomitant]
     Dosage: 3000 U, QD
  20. LOVAZA [Concomitant]
     Indication: SUPPLEMENTATION THERAPY
  21. FORTEO [Suspect]
     Indication: OSTEOPOROSIS
     Dosage: 20 UG, QD
     Dates: start: 20110201
  22. ACETAZOLAMIDE [Concomitant]
  23. CLONAZEPAM [Concomitant]
     Dosage: 2 DF, BID
  24. FLOVENT [Concomitant]
     Dosage: 2 DF, QD
  25. KLOR-CON [Concomitant]
     Dosage: 20 MEQ, QD

REACTIONS (19)
  - FALL [None]
  - VITAMIN D DECREASED [None]
  - ERYTHEMA [None]
  - WEIGHT DECREASED [None]
  - ACCIDENT [None]
  - INJECTION SITE PRURITUS [None]
  - CEREBRAL ATROPHY [None]
  - INJECTION SITE PAIN [None]
  - TREMOR [None]
  - VISUAL IMPAIRMENT [None]
  - BALANCE DISORDER [None]
  - DRUG DOSE OMISSION [None]
  - MUSCULAR WEAKNESS [None]
  - BACK PAIN [None]
  - INTERVERTEBRAL DISC DEGENERATION [None]
  - NASOPHARYNGITIS [None]
  - INJECTION SITE ERYTHEMA [None]
  - INJECTION SITE HAEMATOMA [None]
  - EYELID DISORDER [None]
